FAERS Safety Report 9096812 (Version 1)
Quarter: 2013Q1

REPORT INFORMATION
  Report Type: Spontaneous
  Country: GB (occurrence: GB)
  Receive Date: 20130211
  Receipt Date: 20130211
  Transmission Date: 20140127
  Serious: Yes (Other)
  Sender: FDA-Public Use
  Company Number: GB-TEVA-383977ISR

PATIENT
  Age: 53 Year
  Sex: Female

DRUGS (3)
  1. TERBINAFINE [Suspect]
     Indication: ONYCHOMYCOSIS
     Dosage: 250 MILLIGRAM DAILY;
     Route: 048
     Dates: start: 20120808, end: 20120826
  2. MIGRALEVE PINK [Concomitant]
  3. CALCIUM AND VITAMIN D [Concomitant]

REACTIONS (4)
  - Rash generalised [Recovered/Resolved]
  - Malaise [Unknown]
  - Liver function test abnormal [Unknown]
  - Blood test abnormal [Unknown]
